FAERS Safety Report 14782716 (Version 2)
Quarter: 2018Q2

REPORT INFORMATION
  Report Type: Spontaneous
  Country: US (occurrence: US)
  Receive Date: 20180420
  Receipt Date: 20180425
  Transmission Date: 20180711
  Serious: Yes (Other)
  Sender: FDA-Public Use
  Company Number: US-AMGEN-USASP2018052239

PATIENT
  Sex: Female

DRUGS (3)
  1. ENBREL [Suspect]
     Active Substance: ETANERCEPT
     Indication: PRODUCT USED FOR UNKNOWN INDICATION
     Dosage: UNK
     Route: 065
  2. XELJANZ XR [Concomitant]
     Active Substance: TOFACITINIB CITRATE
     Indication: POLYARTHRITIS
     Dosage: 11 MG, UNK
     Route: 065
  3. METHOTREXATE. [Suspect]
     Active Substance: METHOTREXATE
     Indication: PRODUCT USED FOR UNKNOWN INDICATION
     Dosage: 0.4 CC, QWK
     Route: 058
     Dates: start: 201702, end: 20170530

REACTIONS (8)
  - Cholecystectomy [Unknown]
  - Photosensitivity reaction [Unknown]
  - Nausea [Unknown]
  - Musculoskeletal stiffness [Unknown]
  - Migraine [Unknown]
  - Rash macular [Unknown]
  - Arthralgia [Unknown]
  - Dry mouth [Unknown]

NARRATIVE: CASE EVENT DATE: 2017
